FAERS Safety Report 7767970-5 (Version None)
Quarter: 2011Q3

REPORT INFORMATION
  Report Type: 
  Country: None (occurrence: None)
  Receive Date: 20110922
  Receipt Date: 20100303
  Transmission Date: 20111222
  Serious: Yes (Hospitalization)
  Sender: FDA-Public Use
  Company Number: US-ASTRAZENECA-2009SE28369

PATIENT
  Sex: Male

DRUGS (5)
  1. LISINOPRIL [Concomitant]
     Dates: start: 20081208
  2. SEROQUEL [Suspect]
     Dosage: 25 MG TO 200 MG
     Route: 048
     Dates: start: 20080208
  3. VALIUM [Concomitant]
     Route: 048
     Dates: start: 20080208
  4. DOXEPIN [Concomitant]
     Route: 048
     Dates: start: 20080208
  5. TRAMADOL HCL [Concomitant]
     Indication: BACK PAIN
     Dates: start: 20081201

REACTIONS (1)
  - DIABETES MELLITUS [None]
